FAERS Safety Report 4303880-3 (Version None)
Quarter: 2004Q1

REPORT INFORMATION
  Report Type: 
  Country: None (occurrence: None)
  Receive Date: 20040225
  Receipt Date: 20040213
  Transmission Date: 20041129
  Serious: Yes (Life-Threatening, Hospitalization, Other)
  Sender: FDA-Public Use
  Company Number: GB-GLAXOSMITHKLINE-B0324053A

PATIENT
  Age: 13 Year
  Sex: Female

DRUGS (1)
  1. ZYBAN [Suspect]
     Route: 048
     Dates: start: 20031105, end: 20031105

REACTIONS (5)
  - ACCIDENTAL OVERDOSE [None]
  - CONVULSION [None]
  - HALLUCINATION [None]
  - PULMONARY OEDEMA [None]
  - TACHYCARDIA [None]
